FAERS Safety Report 6754713-7 (Version None)
Quarter: 2010Q2

REPORT INFORMATION
  Report Type: 
  Country: None (occurrence: None)
  Receive Date: 20100603
  Receipt Date: 20100527
  Transmission Date: 20101027
  Serious: Yes (Other)
  Sender: FDA-Public Use
  Company Number: US-GENENTECH-301814

PATIENT
  Sex: Female
  Weight: 96.8 kg

DRUGS (24)
  1. XOLAIR [Suspect]
     Indication: ASTHMA
     Dosage: 300 MG, Q4W
     Route: 058
     Dates: start: 20100413
  2. XOLAIR [Suspect]
     Dosage: UNK
     Dates: start: 20100511
  3. FLONASE [Concomitant]
     Indication: HYPERSENSITIVITY
     Dosage: UNK
     Dates: start: 20090227
  4. PREDNISONE TAB [Concomitant]
     Indication: ASTHMA
     Dosage: 20 MG, QD
     Dates: start: 20090227
  5. PULMICORT [Concomitant]
     Indication: ASTHMA
     Dosage: UNK
     Dates: start: 20100127
  6. SYMBICORT [Concomitant]
     Indication: DRUG USE FOR UNKNOWN INDICATION
  7. VENTOLIN [Concomitant]
     Indication: DRUG USE FOR UNKNOWN INDICATION
  8. XOPENEX [Concomitant]
     Indication: ASTHMA
     Dosage: UNK
     Dates: start: 20090227
  9. XYZAL [Concomitant]
     Indication: DRUG USE FOR UNKNOWN INDICATION
  10. ZYFLO [Concomitant]
     Indication: ASTHMA
     Dosage: UNK TABLET, QID
     Dates: start: 20090227
  11. PATANASE [Concomitant]
     Indication: DRUG USE FOR UNKNOWN INDICATION
  12. COZAAR [Concomitant]
     Indication: DRUG USE FOR UNKNOWN INDICATION
  13. NORVASC [Concomitant]
     Indication: DRUG USE FOR UNKNOWN INDICATION
  14. HYDROCHLOROTHIAZIDE [Concomitant]
     Indication: DRUG USE FOR UNKNOWN INDICATION
  15. MESTINON [Concomitant]
     Indication: DRUG USE FOR UNKNOWN INDICATION
  16. PROTONIX [Concomitant]
     Indication: DRUG USE FOR UNKNOWN INDICATION
  17. MENEST [Concomitant]
     Indication: DRUG USE FOR UNKNOWN INDICATION
  18. PAXIL [Concomitant]
     Indication: DRUG USE FOR UNKNOWN INDICATION
  19. VITAMIN D [Concomitant]
     Indication: DRUG USE FOR UNKNOWN INDICATION
  20. MULTI-VITAMIN [Concomitant]
     Indication: DRUG USE FOR UNKNOWN INDICATION
  21. LOVAZA [Concomitant]
     Indication: DRUG USE FOR UNKNOWN INDICATION
  22. ALVESCO [Concomitant]
     Indication: ASTHMA
     Dosage: UNK
     Dates: start: 20100127
  23. BROVANA [Concomitant]
     Indication: ASTHMA
     Dosage: UNK
     Dates: start: 20100127
  24. ALLEGRA [Concomitant]
     Indication: HYPERSENSITIVITY
     Dosage: UNK TABLET, QD
     Dates: start: 20090227

REACTIONS (4)
  - BLOOD PRESSURE DECREASED [None]
  - DYSPNOEA [None]
  - THROAT TIGHTNESS [None]
  - URTICARIA [None]
